FAERS Safety Report 24674892 (Version 1)
Quarter: 2024Q4

REPORT INFORMATION
  Report Type: Spontaneous
  Country: IN (occurrence: IN)
  Receive Date: 20241128
  Receipt Date: 20241128
  Transmission Date: 20250114
  Serious: Yes (Hospitalization, Other)
  Sender: CADILA
  Company Number: IN-CPL-004789

PATIENT
  Age: 35 Year
  Sex: Male

DRUGS (1)
  1. PREGABALIN [Suspect]
     Active Substance: PREGABALIN
     Indication: Somatic symptom disorder
     Dosage: INCREASED THE DOSE TO 1000 MG, TAPERING OFF THE PREGABALIN BY 50 MG PER WEEK FOR 12 WEEKS

REACTIONS (11)
  - Drug dependence [Unknown]
  - Withdrawal syndrome [Unknown]
  - Anxiety [Unknown]
  - Irritability [Unknown]
  - Aggression [Unknown]
  - Insomnia [Unknown]
  - Decreased appetite [Unknown]
  - Headache [Unknown]
  - Paraesthesia [Unknown]
  - Asthenia [Unknown]
  - Skin tightness [Unknown]
